FAERS Safety Report 4758143-9 (Version None)
Quarter: 2005Q3

REPORT INFORMATION
  Report Type: 
  Country: None (occurrence: None)
  Receive Date: 20050831
  Receipt Date: 20050311
  Transmission Date: 20060218
  Serious: Yes (Hospitalization, Disabling, Other)
  Sender: FDA-Public Use
  Company Number: US-MERCK-0503USA02649

PATIENT
  Age: 54 Year
  Sex: Male
  Weight: 82 kg

DRUGS (39)
  1. VIOXX [Suspect]
     Indication: ARTHRITIS
     Route: 048
     Dates: start: 20000201, end: 20010601
  2. VIOXX [Suspect]
     Indication: BACK INJURY
     Route: 048
     Dates: start: 20000201, end: 20010601
  3. ZANAFLEX [Concomitant]
     Indication: BACK INJURY
     Route: 065
     Dates: start: 19840101
  4. KLONOPIN [Concomitant]
     Indication: ANXIETY
     Route: 065
  5. REMERON [Concomitant]
     Route: 065
  6. ELAVIL [Concomitant]
     Indication: ANXIETY DISORDER
     Route: 065
  7. ELAVIL [Concomitant]
     Indication: DEPRESSION
     Route: 065
  8. PRILOSEC [Concomitant]
     Indication: DYSPEPSIA
     Route: 065
  9. IMDUR [Concomitant]
     Indication: ANGINA PECTORIS
     Route: 065
  10. IMDUR [Concomitant]
     Indication: CARDIAC FAILURE
     Route: 065
  11. ZESTRIL [Concomitant]
     Indication: HYPERTENSION
     Route: 065
  12. POTASSIUM CHLORIDE [Concomitant]
     Indication: FLUID RETENTION
     Route: 065
  13. PLAVIX [Concomitant]
     Route: 065
     Dates: start: 20020913
  14. PLAVIX [Concomitant]
     Route: 065
     Dates: start: 20020913
  15. ZOCOR [Concomitant]
     Route: 065
  16. NORVASC [Concomitant]
     Indication: HYPERTENSION
     Route: 065
  17. NORVASC [Concomitant]
     Route: 065
  18. NORVASC [Concomitant]
     Indication: ANGINA PECTORIS
     Route: 065
  19. NORVASC [Concomitant]
     Route: 065
  20. ISOSORBIDE [Concomitant]
     Indication: CARDIAC DISORDER
     Route: 065
  21. PROVENTIL [Concomitant]
     Indication: DYSPNOEA
     Route: 065
  22. FLOVENT [Concomitant]
     Indication: ASTHMA
     Route: 065
  23. IBUPROFEN [Concomitant]
     Route: 065
     Dates: start: 19990101
  24. THEOPHYLLINE [Concomitant]
     Indication: DYSPNOEA
     Route: 065
  25. DIAZEPAM [Concomitant]
     Indication: ANXIETY
     Route: 065
  26. AMBIEN [Concomitant]
     Indication: SLEEP DISORDER THERAPY
     Route: 065
  27. TYLENOL W/ CODEINE NO. 3 [Concomitant]
     Indication: PAIN MANAGEMENT
     Route: 048
     Dates: start: 19840101
  28. WELLBUTRIN [Concomitant]
     Indication: DEPRESSION
     Route: 065
     Dates: start: 19950421
  29. TEVETEN [Concomitant]
     Route: 065
  30. BUMEX [Concomitant]
     Route: 065
  31. K-DUR 10 [Concomitant]
     Route: 065
  32. THEO-DUR [Concomitant]
     Route: 065
  33. LIPITOR [Concomitant]
     Route: 065
  34. NIASPAN [Concomitant]
     Route: 065
  35. ECOTRIN [Concomitant]
     Route: 065
  36. ISMO [Concomitant]
     Route: 065
  37. LOTREL [Concomitant]
     Route: 065
  38. MONOKET [Concomitant]
     Route: 065
  39. [THERAPY UNSPECIFIED] [Concomitant]
     Route: 060

REACTIONS (7)
  - ABDOMINAL PAIN [None]
  - BLADDER DISORDER [None]
  - CARDIAC DISORDER [None]
  - CARDIAC FAILURE CONGESTIVE [None]
  - CEREBROVASCULAR ACCIDENT [None]
  - GALLBLADDER DISORDER [None]
  - MYOCARDIAL INFARCTION [None]
